FAERS Safety Report 12101551 (Version 1)
Quarter: 2016Q1

REPORT INFORMATION
  Report Type: Spontaneous
  Country: US (occurrence: US)
  Receive Date: 20160222
  Receipt Date: 20160222
  Transmission Date: 20160526
  Serious: Yes (Hospitalization, Other)
  Sender: FDA-Public Use
  Company Number: US-GLAXOSMITHKLINE-US2016024753

PATIENT
  Age: 63 Year
  Sex: Female

DRUGS (4)
  1. ADVAIR DISKUS [Suspect]
     Active Substance: FLUTICASONE PROPIONATE\SALMETEROL XINAFOATE
     Indication: ASTHMA
  2. ADVAIR DISKUS [Suspect]
     Active Substance: FLUTICASONE PROPIONATE\SALMETEROL XINAFOATE
     Indication: CHRONIC OBSTRUCTIVE PULMONARY DISEASE
     Dosage: 1 PUFF(S), BID
     Route: 055
     Dates: start: 2009
  3. PROVENTIL [Concomitant]
     Active Substance: ALBUTEROL
  4. SPIRIVA [Concomitant]
     Active Substance: TIOTROPIUM BROMIDE MONOHYDRATE

REACTIONS (9)
  - Tongue eruption [Unknown]
  - Abasia [Recovering/Resolving]
  - Intentional device misuse [Unknown]
  - Speech disorder [Recovering/Resolving]
  - Product use issue [Unknown]
  - Dyspnoea [Recovering/Resolving]
  - Heart rate increased [Recovering/Resolving]
  - Rash [Unknown]
  - Oesophageal disorder [Unknown]

NARRATIVE: CASE EVENT DATE: 201510
